FAERS Safety Report 10611975 (Version 1)
Quarter: 2014Q4

REPORT INFORMATION
  Report Type: Spontaneous
  Country: US (occurrence: US)
  Receive Date: 20141126
  Receipt Date: 20141126
  Transmission Date: 20150529
  Serious: No
  Sender: FDA-Public Use
  Company Number: US-TEVA-523765USA

PATIENT
  Sex: Female
  Weight: 56.75 kg

DRUGS (6)
  1. DIURIL [Suspect]
     Active Substance: CHLOROTHIAZIDE
     Indication: FLUID RETENTION
  2. ZALEPLON. [Concomitant]
     Active Substance: ZALEPLON
     Indication: INSOMNIA
     Dosage: 5 MILLIGRAM DAILY;
  3. PROAIR HFA [Suspect]
     Active Substance: ALBUTEROL SULFATE
     Indication: EMPHYSEMA
  4. COMBIVENT RESPIMAT [Concomitant]
     Active Substance: ALBUTEROL SULFATE\IPRATROPIUM BROMIDE
     Indication: EMPHYSEMA
  5. OXYGEN. [Concomitant]
     Active Substance: OXYGEN
     Indication: EMPHYSEMA
  6. ALBUTEROL. [Concomitant]
     Active Substance: ALBUTEROL
     Indication: EMPHYSEMA

REACTIONS (3)
  - Dehydration [Unknown]
  - Intentional product misuse [Unknown]
  - Diarrhoea [Recovered/Resolved]
